FAERS Safety Report 11236600 (Version 1)
Quarter: 2015Q3

REPORT INFORMATION
  Report Type: Spontaneous
  Country: US (occurrence: US)
  Receive Date: 20150702
  Receipt Date: 20150702
  Transmission Date: 20151125
  Serious: No
  Sender: FDA-Public Use
  Company Number: US-TAKEDA-2015TUS004464

PATIENT
  Age: 49 Year
  Sex: Female
  Weight: 78.5 kg

DRUGS (2)
  1. CONTRAVE [Suspect]
     Active Substance: BUPROPION HYDROCHLORIDE\NALTREXONE HYDROCHLORIDE
     Indication: DEPRESSION
  2. CONTRAVE [Suspect]
     Active Substance: BUPROPION HYDROCHLORIDE\NALTREXONE HYDROCHLORIDE
     Indication: OBESITY
     Dosage: 1 TABLET, QD, TITRATING DOSE SINCE 6 MONTHS
     Route: 048
     Dates: start: 20150317, end: 20150318

REACTIONS (4)
  - Nausea [Not Recovered/Not Resolved]
  - Product use issue [Recovered/Resolved]
  - Dry mouth [Not Recovered/Not Resolved]
  - Malaise [Recovered/Resolved]

NARRATIVE: CASE EVENT DATE: 20150317
